FAERS Safety Report 4628984-7 (Version None)
Quarter: 2005Q2

REPORT INFORMATION
  Report Type: 
  Country: None (occurrence: None)
  Receive Date: 20050405
  Receipt Date: 20050405
  Transmission Date: 20051028
  Serious: No
  Sender: FDA-Public Use
  Company Number: None

PATIENT
  Age: 61 Year
  Sex: Male
  Weight: 93.95 kg

DRUGS (1)
  1. GABAPENTIN [Suspect]
     Indication: CONVULSION
     Dosage: 100 MG BID ORAL
     Route: 048
     Dates: start: 20040914, end: 20041116

REACTIONS (2)
  - MYOSITIS [None]
  - PHARMACEUTICAL PRODUCT COMPLAINT [None]
